FAERS Safety Report 4733750-8 (Version None)
Quarter: 2005Q3

REPORT INFORMATION
  Report Type: 
  Country: None (occurrence: None)
  Receive Date: 20050729
  Receipt Date: 20050712
  Transmission Date: 20060218
  Serious: Yes (Other)
  Sender: FDA-Public Use
  Company Number: 2005-BP-11853RO

PATIENT
  Age: 56 Year
  Sex: Female

DRUGS (5)
  1. CITALOPRAM HYDROBROMIDE [Suspect]
     Indication: DEPRESSION
  2. METHYLPENIDATE (METHYLPHENIDATE) [Suspect]
     Indication: DECREASED ACTIVITY
     Dosage: 20 MG
  3. VENLAFAXINE HCL [Suspect]
     Indication: DEPRESSION
     Dosage: 300 MG
  4. RISPERDAL [Suspect]
     Indication: DEPRESSION
     Dosage: 0.5 MG
  5. RAMIPRIL [Concomitant]

REACTIONS (8)
  - AGGRESSION [None]
  - ANGER [None]
  - CONDITION AGGRAVATED [None]
  - EXCITABILITY [None]
  - HYPOMANIA [None]
  - INITIAL INSOMNIA [None]
  - IRRITABILITY [None]
  - VERBAL ABUSE [None]
